FAERS Safety Report 10222315 (Version 1)
Quarter: 2014Q2

REPORT INFORMATION
  Report Type: Spontaneous
  Country: BR (occurrence: BR)
  Receive Date: 20140606
  Receipt Date: 20140606
  Transmission Date: 20141212
  Serious: Yes (Other)
  Sender: FDA-Public Use
  Company Number: BR-PFIZER INC-2014152452

PATIENT
  Age: 65 Year
  Sex: Female
  Weight: 62 kg

DRUGS (3)
  1. LYRICA [Suspect]
     Indication: SPINAL PAIN
     Dosage: 75 MG, 1 TABLET TWICE A DAY
     Route: 048
     Dates: start: 201403
  2. LIPITOR [Concomitant]
     Indication: BLOOD CHOLESTEROL
     Dosage: 10 MG (HALF TABLET OF 20MG) ONCE A DAY
     Dates: start: 20121231
  3. RIVOTRIL [Concomitant]
     Indication: SLEEP DISORDER
     Dosage: 2 MG (1 TABLET) AT NIGHT
     Dates: start: 2004

REACTIONS (1)
  - Spinal disorder [Unknown]
